FAERS Safety Report 26193631 (Version 1)
Quarter: 2025Q4

REPORT INFORMATION
  Report Type: Spontaneous
  Country: US (occurrence: None)
  Receive Date: 20251224
  Receipt Date: 20251224
  Transmission Date: 20260118
  Serious: Yes (Death)
  Sender: FDA-CTU
  Company Number: None

PATIENT
  Age: 68 Year
  Sex: Female
  Weight: 56.9 kg

DRUGS (6)
  1. BENDAMUSTINE HYDROCHLORIDE [Suspect]
     Active Substance: BENDAMUSTINE HYDROCHLORIDE
     Dosage: OTHER FREQUENCY : BENDAMUSTINE DOSE: 90MG/M2 IV D1,4 Q 28 DAYS X6 CYCLES.  STUDY TREATMENT COMPLETED, PT WAS IN LONG ;
  2. RITUXIMAB [Suspect]
     Active Substance: RITUXIMAB
     Dosage: OTHER FREQUENCY : RITUXIMAB DOSE: 375MG/M2 IV D1 Q28 DAYS X 6 CYCLES.  STUDY TREATMENT COMPLETED, PT WAS IN LONG ;
  3. VELCADE [Suspect]
     Active Substance: BORTEZOMIB
     Dosage: OTHER FREQUENCY : BORTEZOMIB DOSE 1.3MG/M2 IV D1,4,8,11 Q 28 X 6 CYCLES.  STUDY TREATMENT COMPLETED, PT WAS IN LONG ;
     Dates: end: 20111017
  4. CARBOPLATIN [Suspect]
     Active Substance: CARBOPLATIN
  5. ETOPOSIDE [Suspect]
     Active Substance: ETOPOSIDE
  6. ATEZOLIZUMAB [Suspect]
     Active Substance: ATEZOLIZUMAB

REACTIONS (1)
  - Metastases to central nervous system [None]

NARRATIVE: CASE EVENT DATE: 20250216
